FAERS Safety Report 24227738 (Version 2)
Quarter: 2024Q3

REPORT INFORMATION
  Report Type: Spontaneous
  Country: CA (occurrence: CA)
  Receive Date: 20240820
  Receipt Date: 20240923
  Transmission Date: 20241017
  Serious: Yes (Hospitalization)
  Sender: PFIZER
  Company Number: CA-PFIZER INC-202300321005

PATIENT
  Age: 37 Year
  Sex: Male

DRUGS (7)
  1. INFLECTRA [Suspect]
     Active Substance: INFLIXIMAB-DYYB
     Indication: Crohn^s disease
     Dosage: 7,5 MG/KG, EVERY 7 WEEK
     Route: 042
     Dates: start: 20220510, end: 20220705
  2. INFLECTRA [Suspect]
     Active Substance: INFLIXIMAB-DYYB
     Dosage: 7,5 MG/KG, EVERY 6 WEEK
     Route: 042
     Dates: start: 20220901
  3. INFLECTRA [Suspect]
     Active Substance: INFLIXIMAB-DYYB
     Dosage: 1 DF, 7.5 MG/KG, EVERY 6 WEEKS
     Route: 042
     Dates: start: 20230818
  4. INFLECTRA [Suspect]
     Active Substance: INFLIXIMAB-DYYB
     Dosage: 1 DF, 7.5 MG/KG, EVERY 6 WEEKS (600MG, 6 WEEKS AND 6 DAYS)
     Route: 042
     Dates: start: 20231005
  5. INFLECTRA [Suspect]
     Active Substance: INFLIXIMAB-DYYB
     Dosage: UNK
     Route: 042
     Dates: start: 20240507
  6. INFLECTRA [Suspect]
     Active Substance: INFLIXIMAB-DYYB
     Dosage: 600 MG, 6 WEEKS
     Route: 042
     Dates: start: 20240618
  7. PANTOPRAZOLE SODIUM [Suspect]
     Active Substance: PANTOPRAZOLE SODIUM
     Indication: Abdominal pain upper
     Dosage: UNK
     Route: 065

REACTIONS (9)
  - Food poisoning [Not Recovered/Not Resolved]
  - Conjunctivitis [Recovering/Resolving]
  - Condition aggravated [Not Recovered/Not Resolved]
  - Hot flush [Unknown]
  - Feeling abnormal [Unknown]
  - Malaise [Unknown]
  - Off label use [Unknown]
  - Illness [Unknown]
  - Gastritis [Unknown]

NARRATIVE: CASE EVENT DATE: 20230101
